FAERS Safety Report 13122642 (Version 3)
Quarter: 2018Q2

REPORT INFORMATION
  Report Type: Spontaneous
  Country: US (occurrence: US)
  Receive Date: 20170117
  Receipt Date: 20180606
  Transmission Date: 20180711
  Serious: Yes (Other)
  Sender: FDA-Public Use
  Company Number: US-ASTRAZENECA-2017SE02976

PATIENT
  Age: 23501 Day
  Sex: Male
  Weight: 108.9 kg

DRUGS (30)
  1. AMOXICILLIN/CLAVULAN [Concomitant]
     Dosage: 875-125 MG, UNKNOWN
     Dates: start: 20150829
  2. PEPCID [Concomitant]
     Active Substance: FAMOTIDINE
  3. TAGAMET HB [Concomitant]
     Active Substance: CIMETIDINE
  4. NEXIUM [Suspect]
     Active Substance: ESOMEPRAZOLE MAGNESIUM
     Indication: GASTROOESOPHAGEAL REFLUX DISEASE
     Dosage: 40.0MG UNKNOWN
     Route: 048
     Dates: start: 2013, end: 2015
  5. ZEGERID [Suspect]
     Active Substance: OMEPRAZOLE\SODIUM BICARBONATE
     Route: 065
  6. ZANTAC [Concomitant]
     Active Substance: RANITIDINE HYDROCHLORIDE
  7. NEXIUM [Suspect]
     Active Substance: ESOMEPRAZOLE MAGNESIUM
     Indication: GASTROOESOPHAGEAL REFLUX DISEASE
     Dosage: 40.0MG UNKNOWN
     Route: 048
     Dates: start: 20140808
  8. PRILOSEC [Suspect]
     Active Substance: OMEPRAZOLE MAGNESIUM
     Indication: GASTROOESOPHAGEAL REFLUX DISEASE
     Dosage: GENERIC
     Route: 065
     Dates: start: 2015
  9. PROTONIX [Suspect]
     Active Substance: PANTOPRAZOLE SODIUM
     Route: 065
  10. CITALOPRAM [Concomitant]
     Active Substance: CITALOPRAM HYDROBROMIDE
     Indication: DEPRESSION
  11. MONTELUKAST [Concomitant]
     Active Substance: MONTELUKAST SODIUM
     Indication: ASTHMA
  12. PREVACID [Suspect]
     Active Substance: LANSOPRAZOLE
     Indication: GASTROOESOPHAGEAL REFLUX DISEASE
     Route: 065
     Dates: start: 2013
  13. DEXILANT [Suspect]
     Active Substance: DEXLANSOPRAZOLE
     Route: 065
  14. ATENOLOL. [Concomitant]
     Active Substance: ATENOLOL
     Dosage: 25.0MG UNKNOWN
     Dates: start: 20150806
  15. SIMVASTATIN. [Concomitant]
     Active Substance: SIMVASTATIN
     Dosage: 40.0MG UNKNOWN
     Dates: start: 20150819
  16. TRAZODONE [Concomitant]
     Active Substance: TRAZODONE HYDROCHLORIDE
     Indication: PAIN
  17. ATORVASTATIN [Concomitant]
     Active Substance: ATORVASTATIN
     Indication: BLOOD CHOLESTEROL ABNORMAL
  18. BUSPIRONE [Concomitant]
     Active Substance: BUSPIRONE HYDROCHLORIDE
     Indication: ANXIETY
  19. ASA 81 [Concomitant]
     Active Substance: ASPIRIN
  20. DULOXETINE. [Concomitant]
     Active Substance: DULOXETINE
     Dosage: 100.0MG UNKNOWN
     Dates: start: 20160817
  21. FINASTERIDE. [Concomitant]
     Active Substance: FINASTERIDE
     Dosage: 5.0MG UNKNOWN
     Dates: start: 20140806
  22. GABAPENTIN. [Concomitant]
     Active Substance: GABAPENTIN
     Dosage: 30.0MG UNKNOWN
     Dates: start: 20140806
  23. LISINOPRIL. [Concomitant]
     Active Substance: LISINOPRIL
     Dosage: 20.0MG UNKNOWN
     Dates: start: 20140609
  24. LEVOFLOXACIN. [Concomitant]
     Active Substance: LEVOFLOXACIN
     Dosage: 500.0MG UNKNOWN
     Dates: start: 20140714
  25. PEPCID AC [Concomitant]
     Active Substance: FAMOTIDINE
  26. NEXIUM [Suspect]
     Active Substance: ESOMEPRAZOLE MAGNESIUM
     Indication: GASTROOESOPHAGEAL REFLUX DISEASE
     Route: 048
     Dates: start: 2009
  27. PREVACID [Suspect]
     Active Substance: LANSOPRAZOLE
     Indication: GASTROOESOPHAGEAL REFLUX DISEASE
     Dosage: GENERIC
     Route: 065
     Dates: start: 2013
  28. METHYLPREDNISOLONE. [Concomitant]
     Active Substance: METHYLPREDNISOLONE
     Dosage: 4.0MG UNKNOWN
     Dates: start: 20140714
  29. OMEPRAZOLE. [Concomitant]
     Active Substance: OMEPRAZOLE
     Dosage: 40.0MG UNKNOWN
     Dates: start: 20150128
  30. FISH OIL [Concomitant]
     Active Substance: FISH OIL

REACTIONS (3)
  - Endocarditis [Unknown]
  - Chronic kidney disease [Unknown]
  - Essential hypertension [Unknown]

NARRATIVE: CASE EVENT DATE: 20130507
